FAERS Safety Report 10141961 (Version 2)
Quarter: 2014Q2

REPORT INFORMATION
  Report Type: Report from Study
  Country: US (occurrence: US)
  Receive Date: 20140429
  Receipt Date: 20140623
  Transmission Date: 20141212
  Serious: Yes (Death)
  Sender: FDA-Public Use
  Company Number: US-ACTELION-A-US2014-97825

PATIENT
  Age: 78 Year
  Sex: Male

DRUGS (1)
  1. TRACLEER [Suspect]
     Indication: PULMONARY HYPERTENSION
     Dosage: UNK
     Route: 048
     Dates: end: 20140417

REACTIONS (4)
  - Respiratory syncytial virus infection [Fatal]
  - Respiratory failure [Fatal]
  - Malaise [Unknown]
  - Asthenia [Unknown]
